FAERS Safety Report 8623308 (Version 3)
Quarter: 2013Q2

REPORT INFORMATION
  Report Type: Report from Study
  Country: MX (occurrence: MX)
  Receive Date: 20120620
  Receipt Date: 20130426
  Transmission Date: 20140414
  Serious: Yes (Death, Other)
  Sender: FDA-Public Use
  Company Number: PHHY2012MX052143

PATIENT
  Age: 77 Year
  Sex: Male

DRUGS (1)
  1. ACLASTA [Suspect]
     Indication: OSTEOPOROSIS
     Dosage: 5 MG/100 ML, ONCE A YEAR
     Route: 042

REACTIONS (5)
  - Metastases to kidney [Fatal]
  - Prostate cancer [Fatal]
  - Respiratory arrest [Fatal]
  - Neoplasm progression [Unknown]
  - Haematuria [Unknown]
